FAERS Safety Report 7970278-6 (Version None)
Quarter: 2011Q4

REPORT INFORMATION
  Report Type: 
  Country: None (occurrence: None)
  Receive Date: 20111212
  Receipt Date: 20111130
  Transmission Date: 20120403
  Serious: Yes (Other)
  Sender: FDA-Public Use
  Company Number: PL-JNJFOC-20111201398

PATIENT

DRUGS (1)
  1. REMICADE [Suspect]
     Indication: CROHN'S DISEASE
     Dosage: INDUCTION DOSE 0-2-6 WEEKS AND MAINTENANCE DOSE PER 8 WEEKS
     Route: 042

REACTIONS (1)
  - VISUAL IMPAIRMENT [None]
